FAERS Safety Report 15956172 (Version 1)
Quarter: 2019Q1

REPORT INFORMATION
  Report Type: Spontaneous
  Country: JP (occurrence: JP)
  Receive Date: 20190213
  Receipt Date: 20190213
  Transmission Date: 20190417
  Serious: Yes (Other)
  Sender: FDA-Public Use
  Company Number: JP-BAYER-2019-026437

PATIENT
  Sex: Female

DRUGS (1)
  1. YAZ [Suspect]
     Active Substance: DROSPIRENONE\ETHINYL ESTRADIOL
     Dosage: UNK
     Route: 048
     Dates: start: 201810

REACTIONS (5)
  - Loss of consciousness [Recovering/Resolving]
  - Fall [None]
  - Nausea [None]
  - Nasopharyngitis [None]
  - Muscle spasms [None]

NARRATIVE: CASE EVENT DATE: 20190206
